FAERS Safety Report 7477619-7 (Version None)
Quarter: 2011Q2

REPORT INFORMATION
  Report Type: 
  Country: None (occurrence: None)
  Receive Date: 20110513
  Receipt Date: 20101222
  Transmission Date: 20111010
  Serious: Yes (Hospitalization, Other)
  Sender: FDA-Public Use
  Company Number: US-BAYER-201014016NA

PATIENT
  Sex: Female
  Weight: 58.05 kg

DRUGS (4)
  1. YAZ [Suspect]
     Indication: CONTRACEPTION
     Dosage: UNK
  2. LEVOTHYROXINE SODIUM [Concomitant]
     Indication: THYROID DISORDER
     Dosage: 50 MCG/24HR, UNK
     Dates: start: 20070101
  3. YASMIN [Suspect]
     Route: 048
     Dates: start: 20070101
  4. AMPHETAMINE AND DEXTROAMPHETAMINE SALTS [Concomitant]
     Indication: APPETITE DISORDER
     Dosage: 20 MG, UNK

REACTIONS (6)
  - CHOLECYSTITIS CHRONIC [None]
  - CHOLESTEROSIS [None]
  - GALLBLADDER CHOLESTEROLOSIS [None]
  - GALLBLADDER DISORDER [None]
  - ABDOMINAL PAIN [None]
  - BILIARY COLIC [None]
